FAERS Safety Report 12245452 (Version 2)
Quarter: 2016Q2

REPORT INFORMATION
  Report Type: Spontaneous
  Country: US (occurrence: US)
  Receive Date: 20160407
  Receipt Date: 20160407
  Transmission Date: 20160815
  Serious: Yes (Other)
  Sender: FDA-Public Use
  Company Number: US-ACTAVIS-2016-07389

PATIENT
  Age: 33 Year
  Sex: Male

DRUGS (3)
  1. CARBOPLATIN (WATSON LABORATORIES) [Suspect]
     Active Substance: CARBOPLATIN
     Indication: ADENOCARCINOMA
     Dosage: 2 CYCLES
     Route: 065
  2. GEMCITABINE (ATLLC) [Suspect]
     Active Substance: GEMCITABINE HYDROCHLORIDE
     Indication: ADENOCARCINOMA
     Dosage: 2 CYCLES
     Route: 065
  3. PACLITAXEL (ATLLC) [Suspect]
     Active Substance: PACLITAXEL
     Indication: ADENOCARCINOMA
     Dosage: 2 CYCLES
     Route: 065

REACTIONS (1)
  - Neutropenia [Unknown]
